FAERS Safety Report 5661732-0 (Version None)
Quarter: 2008Q1

REPORT INFORMATION
  Report Type: 
  Country: None (occurrence: None)
  Receive Date: 20080312
  Receipt Date: 20080307
  Transmission Date: 20080703
  Serious: Yes (Death, Hospitalization)
  Sender: FDA-Public Use
  Company Number: B0511423A

PATIENT
  Age: 32 Year
  Sex: Male

DRUGS (1)
  1. ZIAGEN [Suspect]
     Indication: ANTIRETROVIRAL THERAPY
     Dosage: 300MG TWICE PER DAY
     Route: 048
     Dates: start: 20050614, end: 20050819

REACTIONS (3)
  - ASTHENIA [None]
  - DYSSTASIA [None]
  - NEOPLASM PROGRESSION [None]
